FAERS Safety Report 17998044 (Version 3)
Quarter: 2023Q1

REPORT INFORMATION
  Report Type: Report from Study
  Country: US (occurrence: US)
  Receive Date: 20200709
  Receipt Date: 20230105
  Transmission Date: 20230417
  Serious: No
  Sender: FDA-Public Use
  Company Number: US-SHIRE-US202021941

PATIENT
  Sex: Female

DRUGS (2)
  1. VELAGLUCERASE ALFA [Suspect]
     Active Substance: VELAGLUCERASE ALFA
     Indication: Gaucher^s disease
     Dosage: 5600 INTERNATIONAL UNIT, 2/WEEK
     Route: 042
     Dates: start: 20100714
  2. PFIZER-BIONTECH COVID-19 VACCINE [Suspect]
     Active Substance: TOZINAMERAN
     Indication: Product used for unknown indication
     Route: 065

REACTIONS (5)
  - Stress fracture [Not Recovered/Not Resolved]
  - Lymphadenopathy [Unknown]
  - COVID-19 immunisation [Unknown]
  - Chest discomfort [Unknown]
  - Product distribution issue [Unknown]
